FAERS Safety Report 4765074-7 (Version None)
Quarter: 2005Q3

REPORT INFORMATION
  Report Type: 
  Country: None (occurrence: None)
  Receive Date: 20050907
  Receipt Date: 20050825
  Transmission Date: 20060218
  Serious: Yes (Life-Threatening, Hospitalization)
  Sender: FDA-Public Use
  Company Number: 200511444BCC

PATIENT
  Age: 44 Year
  Sex: Female
  Weight: 69.8539 kg

DRUGS (3)
  1. ALEVE (CAPLET) [Suspect]
     Indication: SHOULDER PAIN
     Dosage: 440 MG, ONCE, ORAL
     Route: 048
     Dates: start: 20050319
  2. IBUPROFEN [Concomitant]
  3. SINGULAIR [Concomitant]

REACTIONS (30)
  - ABDOMINAL PAIN [None]
  - ANAPHYLACTIC SHOCK [None]
  - ANISOCYTOSIS [None]
  - BACK DISORDER [None]
  - BLOOD BILIRUBIN INCREASED [None]
  - BLOOD GLUCOSE INCREASED [None]
  - BLOOD URINE [None]
  - BODY TEMPERATURE DECREASED [None]
  - CONFUSIONAL STATE [None]
  - CONSCIOUSNESS FLUCTUATING [None]
  - DEPRESSED LEVEL OF CONSCIOUSNESS [None]
  - DRUG INEFFECTIVE [None]
  - HYPOKALAEMIA [None]
  - LOSS OF CONSCIOUSNESS [None]
  - LYMPHOCYTE MORPHOLOGY ABNORMAL [None]
  - NEUTROPHIL COUNT ABNORMAL [None]
  - PCO2 DECREASED [None]
  - PROTEIN URINE PRESENT [None]
  - RED BLOOD CELLS URINE [None]
  - RED CELL DISTRIBUTION WIDTH INCREASED [None]
  - SKIN ODOUR ABNORMAL [None]
  - SPECIFIC GRAVITY URINE INCREASED [None]
  - TREATMENT NONCOMPLIANCE [None]
  - TREMOR [None]
  - URINE BILIRUBIN INCREASED [None]
  - URINE KETONE BODY PRESENT [None]
  - URINE LEUKOCYTE ESTERASE POSITIVE [None]
  - VAGINAL HAEMORRHAGE [None]
  - WHITE BLOOD CELL COUNT INCREASED [None]
  - WHITE BLOOD CELLS URINE POSITIVE [None]
